FAERS Safety Report 6076126-6 (Version None)
Quarter: 2009Q1

REPORT INFORMATION
  Report Type: 
  Country: None (occurrence: None)
  Receive Date: 20090212
  Receipt Date: 20090203
  Transmission Date: 20090719
  Serious: No
  Sender: FDA-Public Use
  Company Number: US-B.I. PHARMACEUTICALS,INC./RIDGEFIELD-2008-BP-17456BP

PATIENT
  Sex: Female

DRUGS (2)
  1. SPIRIVA [Suspect]
     Indication: CHRONIC OBSTRUCTIVE PULMONARY DISEASE
     Dosage: 18MCG
     Route: 055
     Dates: start: 20071101
  2. PREMARIN [Concomitant]

REACTIONS (4)
  - APHTHOUS STOMATITIS [None]
  - LIP DISCOLOURATION [None]
  - ORAL DISCOMFORT [None]
  - STOMATITIS [None]
